FAERS Safety Report 5624637-7 (Version None)
Quarter: 2008Q1

REPORT INFORMATION
  Report Type: 
  Country: None (occurrence: None)
  Receive Date: 20080213
  Receipt Date: 20080201
  Transmission Date: 20080703
  Serious: Yes (Hospitalization, Other)
  Sender: FDA-Public Use
  Company Number: US-ROCHE-545244

PATIENT
  Age: 41 Year
  Sex: Male

DRUGS (7)
  1. PEGASYS [Suspect]
     Route: 065
  2. PEGASYS [Suspect]
     Dosage: THERAPY RESTARTED
     Route: 065
     Dates: start: 20071022
  3. RIBAVIRIN [Suspect]
     Route: 065
  4. PAXIL [Concomitant]
  5. BENADRYL [Concomitant]
  6. ACTOS [Concomitant]
  7. DIOVAN [Concomitant]

REACTIONS (6)
  - ANAEMIA [None]
  - CONVULSION [None]
  - DIABETES MELLITUS [None]
  - FATIGUE [None]
  - LOSS OF CONSCIOUSNESS [None]
  - VIRAL LOAD INCREASED [None]
